FAERS Safety Report 6877275-2 (Version None)
Quarter: 2010Q3

REPORT INFORMATION
  Report Type: 
  Country: None (occurrence: None)
  Receive Date: 20100727
  Receipt Date: 20091014
  Transmission Date: 20110219
  Serious: No
  Sender: FDA-Public Use
  Company Number: US-ABBOTT-09P-163-0594235-00

PATIENT
  Sex: Female
  Weight: 101.7 kg

DRUGS (4)
  1. SYNTHROID [Suspect]
     Indication: AUTOIMMUNE THYROIDITIS
     Dosage: PHARMACY WAS CALLED FOR LOT NUMBER, NOT AVAILABLE
     Route: 048
     Dates: start: 20070101, end: 20070101
  2. SYNTHROID [Suspect]
     Route: 048
     Dates: start: 20070101
  3. TOPROL-XL [Concomitant]
     Indication: PALPITATIONS
     Dates: start: 20070101
  4. AZMACORT [Concomitant]
     Indication: PRODUCT USED FOR UNKNOWN INDICATION

REACTIONS (6)
  - ASTHENIA [None]
  - DRUG EFFECT DECREASED [None]
  - FATIGUE [None]
  - HYPERSOMNIA [None]
  - PALPITATIONS [None]
  - WEIGHT INCREASED [None]
